FAERS Safety Report 6336745-6 (Version None)
Quarter: 2009Q3

REPORT INFORMATION
  Report Type: 
  Country: None (occurrence: None)
  Receive Date: 20090901
  Receipt Date: 20090825
  Transmission Date: 20100115
  Serious: Yes (Life-Threatening, Hospitalization, Other)
  Sender: FDA-Public Use
  Company Number: US-MERCK-0907USA00092

PATIENT
  Age: 30 Year
  Sex: Female
  Weight: 72 kg

DRUGS (6)
  1. SINGULAIR [Suspect]
     Indication: ASTHMA
     Route: 048
     Dates: start: 20060101, end: 20090305
  2. ALBUTEROL [Concomitant]
     Indication: ASTHMA
     Route: 065
     Dates: start: 20050101
  3. LAMICTAL [Concomitant]
     Indication: DEPRESSION
     Route: 048
  4. SEROQUEL [Concomitant]
     Indication: DEPRESSION
     Route: 048
  5. BENADRYL [Concomitant]
     Indication: HYPERSENSITIVITY
     Route: 048
     Dates: end: 20090301
  6. ZYRTEC [Concomitant]
     Indication: HYPERSENSITIVITY
     Route: 048
     Dates: start: 20090301

REACTIONS (2)
  - DEPRESSION [None]
  - SUICIDE ATTEMPT [None]
